FAERS Safety Report 4510431-7 (Version None)
Quarter: 2004Q4

REPORT INFORMATION
  Report Type: 
  Country: None (occurrence: None)
  Receive Date: 20041124
  Receipt Date: 20041026
  Transmission Date: 20050328
  Serious: Yes (Life-Threatening, Hospitalization, Other)
  Sender: FDA-Public Use
  Company Number: US-GLAXOSMITHKLINE-A0531321A

PATIENT
  Age: 39 Year
  Sex: Male

DRUGS (3)
  1. EPZICOM [Suspect]
     Indication: HIV INFECTION
     Dosage: 1TAB UNKNOWN
     Route: 048
     Dates: start: 20041020, end: 20041026
  2. SUSTIVA [Concomitant]
  3. VIREAD [Concomitant]

REACTIONS (22)
  - ASTHENIA [None]
  - CONSTIPATION [None]
  - DIARRHOEA [None]
  - DIZZINESS [None]
  - DYSARTHRIA [None]
  - EXTREMITY NECROSIS [None]
  - EYE SWELLING [None]
  - FALL [None]
  - HYPERSENSITIVITY [None]
  - HYPONATRAEMIA [None]
  - HYPOTENSION [None]
  - LABORATORY TEST ABNORMAL [None]
  - LIVER FUNCTION TEST ABNORMAL [None]
  - NAUSEA [None]
  - PETECHIAE [None]
  - PYREXIA [None]
  - RASH [None]
  - RASH PUSTULAR [None]
  - RENAL FAILURE [None]
  - RHABDOMYOLYSIS [None]
  - TACHYCARDIA [None]
  - TACHYPNOEA [None]
